FAERS Safety Report 8886205 (Version 3)
Quarter: 2013Q4

REPORT INFORMATION
  Report Type: Spontaneous
  Country: US (occurrence: US)
  Receive Date: 20121105
  Receipt Date: 20131211
  Transmission Date: 20140711
  Serious: Yes (Other)
  Sender: FDA-Public Use
  Company Number: US-PFIZER INC-2012273447

PATIENT
  Age: 53 Year
  Sex: Female
  Weight: 63.49 kg

DRUGS (1)
  1. PROPANOLOL HCL [Suspect]
     Indication: HYPERTENSION
     Dosage: UNK

REACTIONS (14)
  - Hypertension [Recovered/Resolved]
  - Blood pressure increased [Recovering/Resolving]
  - Dizziness [Recovered/Resolved]
  - Nausea [Recovered/Resolved]
  - Visual impairment [Recovered/Resolved]
  - Heart rate increased [Recovered/Resolved]
  - Disorientation [Recovered/Resolved]
  - Diplopia [Recovered/Resolved]
  - Swelling [Not Recovered/Not Resolved]
  - Fluid retention [Not Recovered/Not Resolved]
  - Feeling jittery [Recovered/Resolved]
  - Migraine [Recovered/Resolved]
  - Headache [Recovered/Resolved]
  - Fluid retention [Not Recovered/Not Resolved]
